FAERS Safety Report 7595403-0 (Version None)
Quarter: 2011Q3

REPORT INFORMATION
  Report Type: 
  Country: None (occurrence: None)
  Receive Date: 20110707
  Receipt Date: 20110623
  Transmission Date: 20111222
  Serious: Yes (Hospitalization)
  Sender: FDA-Public Use
  Company Number: NO-JNJFOC-20110600761

PATIENT
  Sex: Male

DRUGS (3)
  1. ATACAND [Concomitant]
  2. METOPROLOL SUCCINATE [Concomitant]
  3. REMICADE [Suspect]
     Indication: PSORIATIC ARTHROPATHY
     Route: 042
     Dates: start: 20071201, end: 20101201

REACTIONS (3)
  - HAEMATOCHEZIA [None]
  - HAEMOGLOBIN DECREASED [None]
  - COLON CANCER [None]
